FAERS Safety Report 8819565 (Version 3)
Quarter: 2012Q4

REPORT INFORMATION
  Report Type: 
  Country: US (occurrence: US)
  Receive Date: 20121001
  Receipt Date: 20121217
  Transmission Date: 20130627
  Serious: Yes (Hospitalization)
  Sender: FDA-Public Use
  Company Number: US-BIOGENIDEC-2012BI039651

PATIENT
  Age: 56 Year
  Sex: Female

DRUGS (2)
  1. AVONEX [Suspect]
     Indication: MULTIPLE SCLEROSIS
     Route: 030
     Dates: start: 20110911
  2. AVONEX [Suspect]
     Indication: MULTIPLE SCLEROSIS
     Route: 030
     Dates: start: 20110929

REACTIONS (10)
  - Ovarian cyst [Recovered/Resolved]
  - Polyp [Recovered/Resolved]
  - Migraine [Recovered/Resolved]
  - Mental disorder [Recovered/Resolved]
  - Peripheral coldness [Recovered/Resolved]
  - Bone contusion [Not Recovered/Not Resolved]
  - Fall [Recovered/Resolved]
  - Skin discolouration [Not Recovered/Not Resolved]
  - Back pain [Not Recovered/Not Resolved]
  - Muscle spasms [Recovered/Resolved]
